FAERS Safety Report 8236951-X (Version None)
Quarter: 2012Q1

REPORT INFORMATION
  Report Type: 
  Country: None (occurrence: None)
  Receive Date: 20120327
  Receipt Date: 20120315
  Transmission Date: 20120608
  Serious: Yes (Life-Threatening, Hospitalization)
  Sender: FDA-Public Use
  Company Number: PHHO2010BR18883

PATIENT
  Sex: Female
  Weight: 81 kg

DRUGS (10)
  1. BLINDED NO TREATMENT RECEIVED [Suspect]
     Indication: BREAST CANCER METASTATIC
     Dosage: CODE NOT BROKEN
     Route: 048
     Dates: start: 20100720, end: 20101207
  2. SIMVASTATIN [Concomitant]
     Indication: HYPERCHOLESTEROLAEMIA
  3. OMEPRAZOLE [Concomitant]
  4. COMPARATOR TRASTUZUMAB [Suspect]
     Indication: BREAST CANCER METASTATIC
     Dosage: 2 MG
     Route: 042
     Dates: start: 20100720, end: 20101208
  5. CAPTOPRIL [Concomitant]
     Indication: HYPERTENSION
     Dosage: UNK
     Dates: start: 20100817, end: 20101210
  6. PLACEBO [Suspect]
     Indication: BREAST CANCER METASTATIC
     Dosage: CODE NOT BROKEN
     Route: 048
     Dates: start: 20100720, end: 20101207
  7. AMITRIPTYLINE HCL [Concomitant]
     Indication: INSOMNIA
  8. HYDROCHLOROTHIAZIDE [Concomitant]
     Indication: HYPERTENSION
  9. AFINITOR [Suspect]
     Indication: BREAST CANCER METASTATIC
     Dosage: CODE NOT BROKEN
     Route: 048
     Dates: start: 20100720, end: 20101207
  10. PACLITAXEL [Suspect]
     Indication: BREAST CANCER METASTATIC
     Dosage: 80 MG PER WEEK
     Route: 048
     Dates: start: 20100720, end: 20101208

REACTIONS (3)
  - PYREXIA [None]
  - PNEUMONITIS [None]
  - COUGH [None]
